FAERS Safety Report 24182344 (Version 18)
Quarter: 2025Q3

REPORT INFORMATION
  Report Type: Report from Study
  Country: CA (occurrence: CA)
  Receive Date: 20240807
  Receipt Date: 20250718
  Transmission Date: 20251021
  Serious: Yes (Other)
  Sender: TAKEDA
  Company Number: CA-TAKEDA-2024TUS077921

PATIENT
  Age: 65 Year
  Sex: Female

DRUGS (19)
  1. TEDUGLUTIDE [Suspect]
     Active Substance: TEDUGLUTIDE
     Indication: Short-bowel syndrome
     Dosage: 3.6 MILLIGRAM, QD
     Dates: start: 20240730
  2. TEDUGLUTIDE [Suspect]
     Active Substance: TEDUGLUTIDE
     Dosage: 0.05 MILLIGRAM/KILOGRAM, QD
  3. TEDUGLUTIDE [Suspect]
     Active Substance: TEDUGLUTIDE
     Dosage: UNK UNK, QD
  4. TEDUGLUTIDE [Suspect]
     Active Substance: TEDUGLUTIDE
     Dosage: 3.6 MILLIGRAM, QD
  5. TEDUGLUTIDE [Suspect]
     Active Substance: TEDUGLUTIDE
     Dosage: 3.6 MILLIGRAM, QD
  6. PANTOPRAZOLE SODIUM [Concomitant]
     Active Substance: PANTOPRAZOLE SODIUM
     Dosage: 40 MILLIGRAM, BID
  7. ARIPIPRAZOLE [Concomitant]
     Active Substance: ARIPIPRAZOLE
     Dosage: 30 MILLIGRAM, QD
  8. AZATHIOPRINE [Concomitant]
     Active Substance: AZATHIOPRINE
     Dosage: 75 MILLIGRAM, QD
  9. LOPERAMIDE [Concomitant]
     Active Substance: LOPERAMIDE
     Dosage: 4 MILLIGRAM, QID
  10. PAROXETINE [Concomitant]
     Active Substance: PAROXETINE
     Dosage: 60 MILLIGRAM, QD
  11. Ferroglucon [Concomitant]
     Dosage: 60 MILLIGRAM, QD
  12. THIAMINE HYDROCHLORIDE [Concomitant]
     Active Substance: THIAMINE HYDROCHLORIDE
     Dosage: 100 MILLIGRAM, QD
  13. VITAMIN D NOS [Concomitant]
     Active Substance: CHOLECALCIFEROL\ERGOCALCIFEROL
     Dosage: 2000 INTERNATIONAL UNIT, MONTHLY
  14. VITAMIN B12 [Concomitant]
     Active Substance: CYANOCOBALAMIN
     Dosage: UNK UNK, MONTHLY
  15. CALCIUM [Concomitant]
     Active Substance: CALCIUM
     Dosage: 100 MILLIGRAM, QD
  16. ONDANSETRON [Concomitant]
     Active Substance: ONDANSETRON
  17. PREDNISONE [Concomitant]
     Active Substance: PREDNISONE
  18. MAGNESIUM [Concomitant]
     Active Substance: MAGNESIUM
  19. SALINE [Concomitant]
     Active Substance: SODIUM CHLORIDE

REACTIONS (57)
  - Loss of personal independence in daily activities [Recovered/Resolved]
  - Fatigue [Recovering/Resolving]
  - Paraesthesia [Recovering/Resolving]
  - Joint swelling [Recovering/Resolving]
  - Peripheral swelling [Not Recovered/Not Resolved]
  - Renal impairment [Recovered/Resolved]
  - Asthenia [Recovered/Resolved]
  - Dehydration [Recovering/Resolving]
  - Sleep disorder [Recovering/Resolving]
  - Decreased appetite [Recovering/Resolving]
  - Abdominal pain upper [Not Recovered/Not Resolved]
  - Nausea [Recovered/Resolved]
  - Abdominal pain [Recovered/Resolved]
  - Urine output decreased [Recovering/Resolving]
  - Urine abnormality [Not Recovered/Not Resolved]
  - Obstruction gastric [Unknown]
  - Pain in extremity [Not Recovered/Not Resolved]
  - Abdominal discomfort [Not Recovered/Not Resolved]
  - Bowel movement irregularity [Not Recovered/Not Resolved]
  - Hypoaesthesia [Recovered/Resolved with Sequelae]
  - Back pain [Recovering/Resolving]
  - Hypokinesia [Recovering/Resolving]
  - Sluggishness [Recovering/Resolving]
  - Headache [Not Recovered/Not Resolved]
  - Diarrhoea [Recovered/Resolved]
  - Kidney infection [Not Recovered/Not Resolved]
  - Urinary tract infection [Recovering/Resolving]
  - Dizziness [Recovering/Resolving]
  - Glomerular filtration rate decreased [Recovering/Resolving]
  - Drug ineffective [Recovered/Resolved]
  - Stoma complication [Recovered/Resolved]
  - Skin turgor decreased [Recovered/Resolved]
  - Stoma site pain [Recovered/Resolved]
  - Stoma site erythema [Recovered/Resolved]
  - Gastrointestinal stoma output decreased [Recovered/Resolved]
  - Stoma site discharge [Recovering/Resolving]
  - Abdominal rigidity [Unknown]
  - Weight increased [Not Recovered/Not Resolved]
  - Rhinorrhoea [Unknown]
  - Myalgia [Unknown]
  - Arthralgia [Not Recovered/Not Resolved]
  - Haemorrhage [Recovered/Resolved]
  - Injection site bruising [Recovered/Resolved]
  - Fluid retention [Unknown]
  - Flatulence [Not Recovered/Not Resolved]
  - Injection site erythema [Recovered/Resolved]
  - Dyspnoea [Recovering/Resolving]
  - Urine output increased [Recovering/Resolving]
  - Swelling [Recovering/Resolving]
  - Frustration tolerance decreased [Unknown]
  - Weight decreased [Unknown]
  - Product preparation issue [Unknown]
  - Abnormal faeces [Recovered/Resolved]
  - Limb discomfort [Unknown]
  - Malaise [Unknown]
  - Gastrointestinal stoma output increased [Unknown]
  - Oedema peripheral [Recovering/Resolving]

NARRATIVE: CASE EVENT DATE: 20240730
